FAERS Safety Report 14538589 (Version 1)
Quarter: 2018Q1

REPORT INFORMATION
  Report Type: Spontaneous
  Country: AU (occurrence: AU)
  Receive Date: 20180216
  Receipt Date: 20180216
  Transmission Date: 20180509
  Serious: Yes (Life-Threatening, Hospitalization)
  Sender: FDA-Public Use
  Company Number: AU-ROCHE-2062149

PATIENT
  Age: 50 Year
  Sex: Female

DRUGS (5)
  1. LIGNOCAINE [Suspect]
     Active Substance: LIDOCAINE HYDROCHLORIDE
     Indication: ARTHRALGIA
  2. LIGNOCAINE [Suspect]
     Active Substance: LIDOCAINE HYDROCHLORIDE
     Indication: BACK PAIN
     Route: 030
  3. DIAZEPAM. [Suspect]
     Active Substance: DIAZEPAM
     Indication: MYOCLONUS
     Route: 042
  4. BETAMETHASONE ACETATE [Concomitant]
     Active Substance: BETAMETHASONE ACETATE
     Indication: BACK PAIN
     Route: 030
  5. BETAMETHASONE ACETATE [Concomitant]
     Active Substance: BETAMETHASONE ACETATE
     Indication: ARTHRALGIA

REACTIONS (1)
  - Respiratory arrest [Recovered/Resolved]
